FAERS Safety Report 8708809 (Version 5)
Quarter: 2012Q4

REPORT INFORMATION
  Report Type: Report from Study
  Country: DE (occurrence: DE)
  Receive Date: 20120806
  Receipt Date: 20120921
  Transmission Date: 20130627
  Serious: Yes (Life-Threatening, Hospitalization)
  Sender: FDA-Public Use
  Company Number: DE-JNJFOC-20120800066

PATIENT
  Age: 68 Year
  Sex: Male

DRUGS (12)
  1. DOXORUBICIN HYDROCHLORIDE (CAELYX) [Suspect]
     Indication: MULTIPLE MYELOMA
     Route: 042
     Dates: start: 20120417, end: 20120428
  2. DOXORUBICIN HYDROCHLORIDE (CAELYX) [Suspect]
     Indication: MULTIPLE MYELOMA
     Route: 042
     Dates: start: 20120321, end: 20120401
  3. VELCADE [Suspect]
     Indication: MULTIPLE MYELOMA
     Dosage: 3.5 mg/vial
     Route: 065
     Dates: start: 20120417, end: 20120428
  4. VELCADE [Suspect]
     Indication: MULTIPLE MYELOMA
     Dosage: 3.5 mg/vial
     Route: 065
     Dates: start: 20120301, end: 20120312
  5. VELCADE [Suspect]
     Indication: MULTIPLE MYELOMA
     Dosage: 3.5 mg/vial
     Route: 065
     Dates: start: 20120321, end: 20120401
  6. DEXAMETHASON [Suspect]
     Indication: MULTIPLE MYELOMA
     Route: 065
     Dates: start: 20120321, end: 20120401
  7. DEXAMETHASON [Suspect]
     Indication: MULTIPLE MYELOMA
     Route: 065
     Dates: start: 20120417, end: 20120428
  8. DEXAMETHASON [Suspect]
     Indication: MULTIPLE MYELOMA
     Route: 065
     Dates: start: 20120521, end: 20120610
  9. DEXAMETHASON [Suspect]
     Indication: MULTIPLE MYELOMA
     Route: 065
     Dates: start: 20120301, end: 20120312
  10. LENALIDOMIDE [Suspect]
     Indication: MULTIPLE MYELOMA
     Route: 065
     Dates: start: 20120521, end: 20120610
  11. COTRIM D.S [Suspect]
     Indication: PRODUCT USED FOR UNKNOWN INDICATION
     Route: 065
  12. ACICLOVIR [Concomitant]
     Route: 065
     Dates: start: 20120301, end: 20120613

REACTIONS (17)
  - Pulmonary sepsis [Recovered/Resolved]
  - Bronchopulmonary aspergillosis [Recovered/Resolved]
  - Respiratory failure [Unknown]
  - Pain [Unknown]
  - Pseudomonas infection [Unknown]
  - Portal hypertension [Unknown]
  - Renal failure acute [Unknown]
  - Hyperviscosity syndrome [Unknown]
  - Visual impairment [Unknown]
  - Haemangioma of spleen [Unknown]
  - Syncope [Unknown]
  - Epistaxis [Unknown]
  - Rash [Unknown]
  - Decreased appetite [Unknown]
  - Anaemia [Unknown]
  - Thrombocytopenia [Unknown]
  - Leukopenia [Unknown]
